FAERS Safety Report 7832905-3 (Version None)
Quarter: 2011Q4

REPORT INFORMATION
  Report Type: 
  Country: None (occurrence: None)
  Receive Date: 20111019
  Receipt Date: 20110913
  Transmission Date: 20120403
  Serious: Yes (Other)
  Sender: FDA-Public Use
  Company Number: WWISSUE-669

PATIENT
  Sex: Female

DRUGS (3)
  1. PHENOBARBITAL TAB [Suspect]
     Dates: start: 20110901, end: 20110912
  2. HYDROYCHLOROQUINE [Concomitant]
  3. PREDNISONE [Concomitant]

REACTIONS (2)
  - DRUG EFFECT INCREASED [None]
  - PRODUCT QUALITY ISSUE [None]
